FAERS Safety Report 5777060-9 (Version None)
Quarter: 2008Q2

REPORT INFORMATION
  Report Type: 
  Country: None (occurrence: None)
  Receive Date: 20080618
  Receipt Date: 20080611
  Transmission Date: 20081010
  Serious: Yes (Other)
  Sender: FDA-Public Use
  Company Number: US-ASTRAZENECA-2008UW11745

PATIENT
  Age: 55 Year
  Sex: Female
  Weight: 77.1 kg

DRUGS (8)
  1. SYMBICORT [Suspect]
     Indication: ASTHMA
     Dosage: 160/4.5, 2 PUFFS, BID
     Route: 055
     Dates: start: 20080101
  2. PULMICORT [Suspect]
     Dosage: ONE PUFF, TID
     Route: 055
     Dates: start: 20080501
  3. METFORMIN [Concomitant]
  4. SIMVASTATIN [Concomitant]
  5. FOSAMAX [Concomitant]
  6. VITAMIN D [Concomitant]
  7. ZYRTEC [Concomitant]
  8. ALBUTEROL [Concomitant]

REACTIONS (4)
  - BLOOD CHOLESTEROL INCREASED [None]
  - BLOOD PRESSURE INCREASED [None]
  - DIABETES MELLITUS [None]
  - PITUITARY-DEPENDENT CUSHING'S SYNDROME [None]
